FAERS Safety Report 19480083 (Version 1)
Quarter: 2021Q2

REPORT INFORMATION
  Report Type: Spontaneous
  Country: US (occurrence: US)
  Receive Date: 20210630
  Receipt Date: 20210630
  Transmission Date: 20210717
  Serious: No
  Sender: FDA-Public Use
  Company Number: US-FOUNDATIONCONSUMERHC-2021-US-000400

PATIENT
  Age: 31 Year
  Sex: Female
  Weight: 58.97 kg

DRUGS (3)
  1. PLAN B ONE?STEP [Suspect]
     Active Substance: LEVONORGESTREL
     Indication: POST COITAL CONTRACEPTION
     Dosage: 1.5 MG X 1 DOSE
     Route: 048
     Dates: start: 20210106, end: 20210106
  2. WORKOUT SUPPLEMENT?WHEY PROTEIN [Concomitant]
  3. WORKOUT SUPPLEMENT? FAT BURNER [Concomitant]

REACTIONS (1)
  - Headache [Not Recovered/Not Resolved]

NARRATIVE: CASE EVENT DATE: 20210106
